FAERS Safety Report 25032252 (Version 1)
Quarter: 2025Q1

REPORT INFORMATION
  Report Type: Spontaneous
  Country: US (occurrence: US)
  Receive Date: 20250303
  Receipt Date: 20250303
  Transmission Date: 20250409
  Serious: Yes (Other)
  Sender: BAYER HEALTHCARE PHARMACEUTICALS INC.
  Company Number: US-BAYER-2025A027986

PATIENT
  Age: 21 Year
  Sex: Female

DRUGS (2)
  1. MIRENA [Suspect]
     Active Substance: LEVONORGESTREL
     Indication: Contraception
     Dosage: 20?G/DAY
     Route: 015
     Dates: start: 20240410
  2. MIRENA [Suspect]
     Active Substance: LEVONORGESTREL
     Indication: Hyperplasia

REACTIONS (2)
  - Embedded device [None]
  - Genital haemorrhage [None]

NARRATIVE: CASE EVENT DATE: 20250221
